FAERS Safety Report 13896949 (Version 1)
Quarter: 2017Q3

REPORT INFORMATION
  Report Type: Spontaneous
  Country: US (occurrence: None)
  Receive Date: 20170817
  Receipt Date: 20170817
  Transmission Date: 20171127
  Serious: Yes (Hospitalization)
  Sender: FDA-Public Use
  Company Number: None

PATIENT
  Age: 47 Year
  Sex: Male
  Weight: 46.5 kg

DRUGS (1)
  1. 5-FLUOROURACIL (5-FU) [Suspect]
     Active Substance: FLUOROURACIL
     Indication: HIV INFECTION
     Dates: start: 20170630

REACTIONS (2)
  - Cytomegalovirus chorioretinitis [None]
  - Treatment noncompliance [None]

NARRATIVE: CASE EVENT DATE: 20170701
